FAERS Safety Report 7218532-X (Version None)
Quarter: 2011Q1

REPORT INFORMATION
  Report Type: 
  Country: None (occurrence: None)
  Receive Date: 20110110
  Receipt Date: 20110105
  Transmission Date: 20110831
  Serious: Yes (Hospitalization, Other)
  Sender: FDA-Public Use
  Company Number: FR-PFIZER INC-2010180904

PATIENT
  Age: 73 Year
  Sex: Male

DRUGS (11)
  1. ATARAX [Suspect]
     Dosage: 0.5 MG, 3X/DAY
     Route: 048
     Dates: end: 20090801
  2. FORLAX [Concomitant]
     Dosage: 1 DF, 2X/DAY
     Route: 048
  3. CACIT D3 [Concomitant]
  4. CYMBALTA [Suspect]
     Dosage: 1 DF, 1X/DAY
     Dates: start: 20090801, end: 20090801
  5. ATARAX [Suspect]
     Dosage: 25 MG, 4X/DAY
     Route: 048
     Dates: end: 20090902
  6. ATARAX [Suspect]
     Dosage: UNK
     Dates: start: 20090801, end: 20090824
  7. ATARAX [Suspect]
     Dosage: UNK
     Dates: start: 20090824
  8. DAFALGAN [Concomitant]
     Dosage: 1000 MG, 3X/DAY
     Route: 048
  9. NORSET [Concomitant]
     Dosage: 15 MG, 1X/DAY
  10. ALPRAZOLAM [Suspect]
     Dosage: 0.5 MG, 3X/DAY
     Route: 048
     Dates: start: 20090801, end: 20090824
  11. ATARAX [Suspect]
     Dosage: 1 DF, UNK
     Route: 048
     Dates: start: 20090801, end: 20090801

REACTIONS (8)
  - RENAL FAILURE [None]
  - MENTAL STATUS CHANGES [None]
  - DISORIENTATION [None]
  - CONFUSIONAL STATE [None]
  - PSYCHOMOTOR SKILLS IMPAIRED [None]
  - AGGRESSION [None]
  - FALL [None]
  - AGITATION [None]
